FAERS Safety Report 18796194 (Version 5)
Quarter: 2022Q1

REPORT INFORMATION
  Report Type: Spontaneous
  Country: US (occurrence: US)
  Receive Date: 20210127
  Receipt Date: 20220215
  Transmission Date: 20220424
  Serious: Yes (Other)
  Sender: FDA-Public Use
  Company Number: US-PFIZER INC-2021078423

PATIENT
  Age: 70 Year
  Sex: Female

DRUGS (1)
  1. XELJANZ XR [Suspect]
     Active Substance: TOFACITINIB CITRATE
     Dosage: 11 MG, 1X/DAY
     Route: 048

REACTIONS (12)
  - Ear discomfort [Unknown]
  - Otorrhoea [Unknown]
  - Dizziness [Unknown]
  - Fungal infection [Not Recovered/Not Resolved]
  - Arthralgia [Unknown]
  - Back pain [Unknown]
  - Posture abnormal [Unknown]
  - Bone disorder [Unknown]
  - Cough [Unknown]
  - Vitamin D decreased [Unknown]
  - Cardiac murmur [Unknown]
  - Dry eye [Unknown]
